FAERS Safety Report 25190736 (Version 1)
Quarter: 2025Q2

REPORT INFORMATION
  Report Type: Spontaneous
  Country: US (occurrence: US)
  Receive Date: 20250411
  Receipt Date: 20250411
  Transmission Date: 20250717
  Serious: Yes (Other)
  Sender: BLUEPRINT MEDICINES
  Company Number: US-Blueprint Medicines Corporation-2025-AER-00700

PATIENT
  Sex: Female

DRUGS (2)
  1. AYVAKIT [Suspect]
     Active Substance: AVAPRITINIB
     Indication: Indolent systemic mastocytosis
     Route: 065
     Dates: start: 2021
  2. AYVAKIT [Suspect]
     Active Substance: AVAPRITINIB
     Route: 065

REACTIONS (16)
  - Disease progression [Unknown]
  - Indolent systemic mastocytosis [Unknown]
  - Condition aggravated [Unknown]
  - Temperature intolerance [Unknown]
  - Gait disturbance [Unknown]
  - Back pain [Unknown]
  - Depression [Unknown]
  - Anxiety [Unknown]
  - Pain [Unknown]
  - Bone pain [Unknown]
  - Gastrointestinal disorder [Unknown]
  - Brain fog [Unknown]
  - Pruritus [Unknown]
  - Splenomegaly [Unknown]
  - Hepatomegaly [Unknown]
  - Off label use [Unknown]
